FAERS Safety Report 11716082 (Version 2)
Quarter: 2015Q4

REPORT INFORMATION
  Report Type: Spontaneous
  Country: US (occurrence: US)
  Receive Date: 20151104
  Receipt Date: 20151110
  Transmission Date: 20160304
  Serious: No
  Sender: FDA-Public Use
  Company Number: US-ELI_LILLY_AND_COMPANY-US201107006460

PATIENT
  Age: 67 Year
  Sex: Female

DRUGS (5)
  1. FORTEO [Suspect]
     Active Substance: TERIPARATIDE
     Dosage: 20 UG, QD
  2. FORTEO [Suspect]
     Active Substance: TERIPARATIDE
     Indication: OSTEOPOROSIS
     Dosage: 20 UG, QD
     Dates: start: 2010
  3. FORTEO [Suspect]
     Active Substance: TERIPARATIDE
     Dosage: 20 UG, QD
  4. FORTEO [Suspect]
     Active Substance: TERIPARATIDE
     Dosage: 20 UG, QD
  5. FORTEO [Suspect]
     Active Substance: TERIPARATIDE
     Dosage: 20 UG, QD

REACTIONS (15)
  - Injection site erythema [Not Recovered/Not Resolved]
  - Injection site haemorrhage [Unknown]
  - Abdominal discomfort [Unknown]
  - Injection site induration [Unknown]
  - Incorrect product storage [Unknown]
  - Swelling [Recovered/Resolved]
  - Underdose [Unknown]
  - Abdominal pain [Unknown]
  - Injection site bruising [Unknown]
  - Injection site coldness [Unknown]
  - Injection site swelling [Unknown]
  - Injection site pain [Unknown]
  - Medication error [Unknown]
  - Skin discolouration [Unknown]
  - Drug dose omission [Unknown]

NARRATIVE: CASE EVENT DATE: 201203
